FAERS Safety Report 5217031-4 (Version None)
Quarter: 2007Q1

REPORT INFORMATION
  Report Type: 
  Country: None (occurrence: None)
  Receive Date: 20070119
  Receipt Date: 20070111
  Transmission Date: 20070707
  Serious: Yes (Other)
  Sender: FDA-Public Use
  Company Number: GXKR2007DE00653

PATIENT
  Sex: Male

DRUGS (1)
  1. LOPEDIUM (NGX) (LOPERAMIDE) CAPSULE [Suspect]
     Dosage: ORAL
     Route: 048

REACTIONS (3)
  - DRUG ABUSER [None]
  - DRUG LEVEL INCREASED [None]
  - HEPATOCELLULAR DAMAGE [None]
